FAERS Safety Report 8160541-0 (Version None)
Quarter: 2012Q1

REPORT INFORMATION
  Report Type: 
  Country: None (occurrence: None)
  Receive Date: 20120223
  Receipt Date: 20120214
  Transmission Date: 20120608
  Serious: Yes (Hospitalization)
  Sender: FDA-Public Use
  Company Number: US-ASTRAZENECA-2012SE10332

PATIENT
  Age: 65 Year
  Sex: Female

DRUGS (19)
  1. VITAMIN D [Concomitant]
  2. ASPIRIN [Concomitant]
     Dates: end: 20100304
  3. VITAMIN D [Concomitant]
     Dates: end: 20071107
  4. AVANDIA [Concomitant]
     Dates: start: 20050119, end: 20070601
  5. ACTOS [Concomitant]
     Dates: start: 20080107, end: 20110929
  6. VITAMIN D [Concomitant]
     Dates: start: 20071107, end: 20071107
  7. SINGULAIR [Concomitant]
     Dosage: QD
     Dates: start: 20070406, end: 20100304
  8. ICAPS [Concomitant]
     Dosage: QD
  9. LEVOTHYROXINE SODIUM [Concomitant]
     Dates: start: 20060119
  10. PROZAC [Concomitant]
     Dates: start: 20110929
  11. NEXIUM [Suspect]
     Route: 048
     Dates: start: 20021102
  12. BUSPAR [Concomitant]
     Dates: start: 20111013
  13. PROZAC [Concomitant]
     Dates: start: 20101216, end: 20110929
  14. ACTOS [Concomitant]
     Dates: start: 20110929
  15. MOBIC [Concomitant]
     Dosage: 7.5 MG QD W/MEAL
     Dates: start: 20060119
  16. ASPIRIN [Concomitant]
  17. CALCIUM [Concomitant]
     Dosage: 600 TID
  18. GLUCOTROL XL [Concomitant]
  19. PROZAC [Concomitant]
     Dates: start: 20030728, end: 20101216

REACTIONS (4)
  - MACULAR DEGENERATION [None]
  - HYPERLIPIDAEMIA [None]
  - CHEST PAIN [None]
  - VULVAL ABSCESS [None]
